FAERS Safety Report 21829078 (Version 1)
Quarter: 2023Q1

REPORT INFORMATION
  Report Type: Report from Study
  Country: US (occurrence: US)
  Receive Date: 20230106
  Receipt Date: 20230106
  Transmission Date: 20230417
  Serious: No
  Sender: FDA-Public Use
  Company Number: US-ABBVIE-4232276

PATIENT
  Sex: Female

DRUGS (1)
  1. MAVYRET [Suspect]
     Active Substance: GLECAPREVIR\PIBRENTASVIR
     Indication: Chronic hepatitis C
     Dosage: TIME INTERVAL: 0.33333333 DAYS: 100-40MG, EVENT ONSET FOR RED AND BLACK SPOTS ON BREAST AND CHEST...
     Route: 048
     Dates: start: 20221121

REACTIONS (3)
  - Increased tendency to bruise [Unknown]
  - Skin discolouration [Unknown]
  - Rash macular [Unknown]
